FAERS Safety Report 7763600-7 (Version None)
Quarter: 2011Q3

REPORT INFORMATION
  Report Type: 
  Country: None (occurrence: None)
  Receive Date: 20110920
  Receipt Date: 20110519
  Transmission Date: 20111222
  Serious: No
  Sender: FDA-Public Use
  Company Number: US-BAYER-2011-043563

PATIENT
  Age: 53 Year
  Sex: Male
  Weight: 83.9 kg

DRUGS (4)
  1. NIACIN [Concomitant]
  2. ULTRAVIST 150 [Suspect]
     Indication: COMPUTERISED TOMOGRAM
     Dosage: 80 ML, ONCE
     Route: 042
     Dates: start: 20110519, end: 20110519
  3. B6-VITAMIIN NS [Concomitant]
  4. AVODART [Concomitant]

REACTIONS (1)
  - URTICARIA [None]
